FAERS Safety Report 6370482-7 (Version None)
Quarter: 2009Q3

REPORT INFORMATION
  Report Type: 
  Country: None (occurrence: None)
  Receive Date: 20090921
  Receipt Date: 20090921
  Transmission Date: 20100115
  Serious: Yes (Other)
  Sender: FDA-Public Use
  Company Number: None

PATIENT
  Sex: Female

DRUGS (5)
  1. GABAPENTIN [Suspect]
     Indication: ANXIETY
     Dosage: 300 TWO QAM ONE NOON TWO QHS
     Dates: start: 20090101
  2. GABAPENTIN [Suspect]
     Indication: OSTEOARTHRITIS
     Dosage: 300 TWO QAM ONE NOON TWO QHS
     Dates: start: 20090101
  3. GABAPENTIN [Suspect]
     Indication: PAIN
     Dosage: 300 TWO QAM ONE NOON TWO QHS
     Dates: start: 20090101
  4. LORAZEPAM [Concomitant]
  5. LAMICTAL [Concomitant]

REACTIONS (2)
  - PRODUCT SUBSTITUTION ISSUE [None]
  - PSYCHIATRIC DECOMPENSATION [None]
